FAERS Safety Report 6450731-7 (Version None)
Quarter: 2009Q4

REPORT INFORMATION
  Report Type: 
  Country: None (occurrence: None)
  Receive Date: 20091120
  Receipt Date: 20091120
  Transmission Date: 20100525
  Serious: Yes (Hospitalization)
  Sender: FDA-Public Use
  Company Number: None

PATIENT
  Age: 48 Year
  Sex: Female
  Weight: 57 kg

DRUGS (9)
  1. REBIF [Suspect]
     Indication: MULTIPLE SCLEROSIS
     Dosage: 44 MCG EVERY M, W, F SQ
     Route: 058
     Dates: start: 20090911, end: 20091111
  2. NORVASC [Concomitant]
  3. ASPIRIN [Concomitant]
  4. FLEXERIL [Concomitant]
  5. NEXIUM [Concomitant]
  6. TRICOR [Concomitant]
  7. NEURONTIN [Concomitant]
  8. IMDUR [Concomitant]
  9. SOLU-MEDROL [Concomitant]

REACTIONS (2)
  - OEDEMA PERIPHERAL [None]
  - RENAL FAILURE [None]
